FAERS Safety Report 4332802-4 (Version None)
Quarter: 2004Q1

REPORT INFORMATION
  Report Type: 
  Country: None (occurrence: None)
  Receive Date: 20040330
  Receipt Date: 20040318
  Transmission Date: 20041129
  Serious: Yes (Hospitalization)
  Sender: FDA-Public Use
  Company Number: F01200400520

PATIENT
  Age: 48 Year
  Sex: Male

DRUGS (8)
  1. OXALIPLATIN [Suspect]
     Indication: COLORECTAL CANCER
     Dosage: 130 MG/M2 Q3W
     Dates: start: 20040309, end: 20040309
  2. CAPECITABINE [Suspect]
     Dosage: 850 MG/M2, TWICE DAILY FROM D1 TO D15, Q3W
     Dates: start: 20040309, end: 20040311
  3. ONDANSETRON HCL [Concomitant]
  4. EZETIMIBE [Concomitant]
  5. ESOMEPRAZOLE MAGNESIUM [Concomitant]
  6. POTASSIUM CITRATE [Concomitant]
  7. ESCITALOPRAM OXALATE (CITALOPRAM) [Concomitant]
  8. MULTI-VITAMINS [Concomitant]

REACTIONS (6)
  - CHILLS [None]
  - DIARRHOEA [None]
  - HEPATITIS GRANULOMATOUS [None]
  - INTERNATIONAL NORMALISED RATIO DECREASED [None]
  - LYMPHADENOPATHY [None]
  - MEDIASTINAL DISORDER [None]
